FAERS Safety Report 8985424 (Version 1)
Quarter: 2012Q4

REPORT INFORMATION
  Report Type: 
  Country: IT (occurrence: IT)
  Receive Date: 20121226
  Receipt Date: 20121226
  Transmission Date: 20130627
  Serious: Yes (Hospitalization, Other)
  Sender: FDA-Public Use
  Company Number: IT-ASTRAZENECA-2012SE93776

PATIENT
  Age: 31026 Day
  Sex: Male

DRUGS (9)
  1. NEXIUM [Suspect]
     Indication: ABDOMINAL PAIN UPPER
     Route: 048
     Dates: start: 20120701, end: 20120917
  2. OLMESARTAN [Concomitant]
  3. PLACTIDIL [Concomitant]
     Route: 048
  4. CARVEDILOL [Concomitant]
  5. TAVOR [Concomitant]
     Route: 048
  6. NORMIX [Concomitant]
  7. PENTACOL [Concomitant]
  8. LASIX [Concomitant]
  9. KANRENOL [Concomitant]

REACTIONS (4)
  - Electrolyte imbalance [Recovering/Resolving]
  - Hypokalaemia [Recovering/Resolving]
  - Dehydration [Unknown]
  - Diarrhoea [Recovering/Resolving]
